FAERS Safety Report 4698874-2 (Version None)
Quarter: 2005Q2

REPORT INFORMATION
  Report Type: 
  Country: None (occurrence: None)
  Receive Date: 20050624
  Receipt Date: 20050512
  Transmission Date: 20051028
  Serious: Yes (Disabling, Other)
  Sender: FDA-Public Use
  Company Number: PHFR2005GB01798

PATIENT
  Age: 38 Year
  Sex: Female

DRUGS (2)
  1. LAMISIL [Suspect]
     Indication: ONYCHOMYCOSIS
     Dosage: 250 MG, QD
     Route: 048
     Dates: start: 20050315, end: 20050420
  2. BECLOMETHASONE DIPROPIONATE [Concomitant]
     Indication: SEASONAL ALLERGY
     Dosage: 2 PUFFS BID
     Route: 045
     Dates: start: 20050504

REACTIONS (3)
  - AGEUSIA [None]
  - DYSGEUSIA [None]
  - ONYCHOMADESIS [None]
